FAERS Safety Report 18165766 (Version 1)
Quarter: 2020Q3

REPORT INFORMATION
  Report Type: Spontaneous
  Country: US (occurrence: US)
  Receive Date: 20200818
  Receipt Date: 20200818
  Transmission Date: 20201103
  Serious: No
  Sender: FDA-Public Use
  Company Number: US-TEVA-2020-US-1816698

PATIENT
  Sex: Female

DRUGS (2)
  1. LOVASTATIN. [Suspect]
     Active Substance: LOVASTATIN
     Route: 065
  2. LISINOPRIL. [Suspect]
     Active Substance: LISINOPRIL
     Route: 065

REACTIONS (4)
  - Blood creatine phosphokinase increased [Unknown]
  - Glycosylated haemoglobin increased [Unknown]
  - Muscle fatigue [Unknown]
  - Hepatic enzyme increased [Unknown]
